FAERS Safety Report 25938948 (Version 6)
Quarter: 2025Q4

REPORT INFORMATION
  Report Type: Report from Study
  Country: EU (occurrence: EU)
  Receive Date: 20251019
  Receipt Date: 20251202
  Transmission Date: 20260118
  Serious: Yes (Other)
  Sender: ABBVIE
  Company Number: EU-ABBVIE-6499938

PATIENT
  Age: 84 Year
  Sex: Female
  Weight: 42 kg

DRUGS (2)
  1. CARBIDOPA\LEVODOPA [Suspect]
     Active Substance: CARBIDOPA\LEVODOPA
     Indication: Parkinson^s disease
     Route: 050
     Dates: start: 20200305
  2. CARBIDOPA\LEVODOPA [Suspect]
     Active Substance: CARBIDOPA\LEVODOPA

REACTIONS (10)
  - Condition aggravated [Not Recovered/Not Resolved]
  - Device expulsion [Unknown]
  - Incorrect route of product administration [Unknown]
  - Device issue [Recovered/Resolved]
  - Device issue [Unknown]
  - Device physical property issue [Unknown]
  - Device breakage [Unknown]
  - Device connection issue [Unknown]
  - Off label use [Not Recovered/Not Resolved]
  - On and off phenomenon [Recovered/Resolved]

NARRATIVE: CASE EVENT DATE: 20251001
